FAERS Safety Report 5175892-1 (Version None)
Quarter: 2006Q4

REPORT INFORMATION
  Report Type: 
  Country: None (occurrence: None)
  Receive Date: 20061215
  Receipt Date: 20061117
  Transmission Date: 20070319
  Serious: Yes (Hospitalization)
  Sender: FDA-Public Use
  Company Number: FR-GLAXOSMITHKLINE-B0447684A

PATIENT
  Age: 42 Year
  Sex: Female
  Weight: 72 kg

DRUGS (1)
  1. ZYBAN [Suspect]
     Route: 048
     Dates: start: 20020101, end: 20020101

REACTIONS (3)
  - ANGIONEUROTIC OEDEMA [None]
  - SENSE OF OPPRESSION [None]
  - URTICARIA GENERALISED [None]
